FAERS Safety Report 10923168 (Version 3)
Quarter: 2015Q2

REPORT INFORMATION
  Report Type: Spontaneous
  Country: JP (occurrence: JP)
  Receive Date: 20150317
  Receipt Date: 20150515
  Transmission Date: 20150821
  Serious: Yes (Other)
  Sender: FDA-Public Use
  Company Number: JP-BRISTOL-MYERS SQUIBB COMPANY-BMS-2015-015851

PATIENT
  Age: 67 Year
  Sex: Male

DRUGS (3)
  1. DOCETAXEL. [Suspect]
     Active Substance: DOCETAXEL
     Indication: SQUAMOUS CELL CARCINOMA OF HEAD AND NECK
     Dosage: 75 MG/M2, Q4WK
     Route: 041
     Dates: start: 20141208
  2. ERBITUX [Suspect]
     Active Substance: CETUXIMAB
     Indication: SQUAMOUS CELL CARCINOMA OF HEAD AND NECK
     Dosage: 400 MG, QWK
     Route: 041
     Dates: start: 20141208
  3. CISPLATIN. [Suspect]
     Active Substance: CISPLATIN
     Indication: SQUAMOUS CELL CARCINOMA OF HEAD AND NECK
     Dosage: 75 MG/KG, Q4WK
     Route: 041
     Dates: start: 20141208

REACTIONS (19)
  - Seizure [Recovered/Resolved]
  - Radiation skin injury [Unknown]
  - Febrile neutropenia [Recovered/Resolved]
  - Decreased appetite [Unknown]
  - Stomatitis [Unknown]
  - Dysphagia [Unknown]
  - Pyrexia [Unknown]
  - Skin reaction [Unknown]
  - Alopecia [Unknown]
  - Dermatitis acneiform [Unknown]
  - Dry mouth [Unknown]
  - Influenza [Recovered/Resolved]
  - Nausea [Unknown]
  - Dysgeusia [Unknown]
  - Constipation [Unknown]
  - Laryngeal oedema [Unknown]
  - Pharyngeal inflammation [Unknown]
  - Infusion related reaction [Unknown]
  - Cheilitis [Unknown]

NARRATIVE: CASE EVENT DATE: 20141211
